FAERS Safety Report 4400520-X (Version None)
Quarter: 2004Q3

REPORT INFORMATION
  Report Type: 
  Country: None (occurrence: None)
  Receive Date: 20040716
  Receipt Date: 20040716
  Transmission Date: 20050211
  Serious: Yes (Hospitalization)
  Sender: FDA-Public Use
  Company Number: None

PATIENT
  Sex: Male
  Weight: 73.9363 kg

DRUGS (1)
  1. SELENIUM 200 MCG [Suspect]
     Dosage: 200 MCG DAILY
     Dates: start: 20020207, end: 20040715

REACTIONS (3)
  - BRADYCARDIA [None]
  - CARDIAC FAILURE CONGESTIVE [None]
  - RENAL FAILURE CHRONIC [None]
